FAERS Safety Report 24584655 (Version 1)
Quarter: 2024Q4

REPORT INFORMATION
  Report Type: Spontaneous
  Country: US (occurrence: None)
  Receive Date: 20241105
  Receipt Date: 20241105
  Transmission Date: 20250115
  Serious: Yes (Hospitalization, Other)
  Sender: Public
  Company Number: None

PATIENT
  Age: 74 Year
  Sex: Male
  Weight: 158.76 kg

DRUGS (21)
  1. VANCOMYCIN [Suspect]
     Active Substance: VANCOMYCIN
  2. ZOSYN [Suspect]
     Active Substance: PIPERACILLIN SODIUM\TAZOBACTAM SODIUM
  3. REMDESIVIR [Suspect]
     Active Substance: REMDESIVIR
  4. centrum silver men * 50 vitamins [Concomitant]
  5. pro bemecid [Concomitant]
  6. FLOMAX [Concomitant]
     Active Substance: TAMSULOSIN HYDROCHLORIDE
  7. LIPITOR [Concomitant]
     Active Substance: ATORVASTATIN CALCIUM
  8. LISINOPRIL [Concomitant]
     Active Substance: LISINOPRIL
  9. ELIQUIS [Concomitant]
     Active Substance: APIXABAN
  10. ZETIA [Concomitant]
     Active Substance: EZETIMIBE
  11. ATENOLOL [Concomitant]
     Active Substance: ATENOLOL
  12. LASIX [Concomitant]
     Active Substance: FUROSEMIDE
  13. METFORMIN [Concomitant]
     Active Substance: METFORMIN HYDROCHLORIDE
  14. HUMALOG [Concomitant]
     Active Substance: INSULIN LISPRO
  15. toujeo insulin [Concomitant]
  16. albuterol hfa inh [Concomitant]
  17. spiriva respsmzt inh [Concomitant]
  18. gaviscom [Concomitant]
  19. simithicone [Concomitant]
  20. PRILOSEC [Concomitant]
     Active Substance: OMEPRAZOLE MAGNESIUM
  21. diabetic tussin cough syrup [Concomitant]

REACTIONS (12)
  - Pneumonia [None]
  - Sepsis [None]
  - Hypervolaemia [None]
  - Oedema peripheral [None]
  - Polyuria [None]
  - SARS-CoV-2 test positive [None]
  - Blood creatinine increased [None]
  - Acute kidney injury [None]
  - Abdominal discomfort [None]
  - Chest pain [None]
  - Cholelithiasis [None]
  - Pancreatitis [None]

NARRATIVE: CASE EVENT DATE: 20240930
